FAERS Safety Report 18779796 (Version 2)
Quarter: 2021Q1

REPORT INFORMATION
  Report Type: Spontaneous
  Country: CZ (occurrence: CZ)
  Receive Date: 20210125
  Receipt Date: 20210206
  Transmission Date: 20210419
  Serious: Yes (Hospitalization, Other)
  Sender: FDA-Public Use
  Company Number: CZ-AMGEN-CZESP2021011705

PATIENT
  Sex: Female

DRUGS (1)
  1. AIMOVIG [Suspect]
     Active Substance: ERENUMAB-AOOE
     Indication: PRODUCT USED FOR UNKNOWN INDICATION
     Dosage: 140 MILLIGRAM
     Route: 065
     Dates: start: 201906

REACTIONS (15)
  - Venous thrombosis [Unknown]
  - Nausea [Unknown]
  - Pulmonary oedema [Unknown]
  - Headache [Recovering/Resolving]
  - Cerebral haemorrhage [Unknown]
  - Subdural haematoma [Unknown]
  - Circulatory collapse [Unknown]
  - Migraine [Not Recovered/Not Resolved]
  - SARS-CoV-2 test positive [Unknown]
  - Meningeal disorder [Unknown]
  - Loss of consciousness [Unknown]
  - Asthenia [Unknown]
  - Ischaemia [Unknown]
  - Dizziness [Unknown]
  - Epilepsy [Unknown]

NARRATIVE: CASE EVENT DATE: 20210109
